FAERS Safety Report 6754205-5 (Version None)
Quarter: 2010Q2

REPORT INFORMATION
  Report Type: 
  Country: None (occurrence: None)
  Receive Date: 20100603
  Receipt Date: 20100521
  Transmission Date: 20101027
  Serious: Yes (Hospitalization, Other)
  Sender: FDA-Public Use
  Company Number: DE-ELI_LILLY_AND_COMPANY-DE201005001629

PATIENT
  Sex: Female
  Weight: 90 kg

DRUGS (7)
  1. CYMBALTA [Suspect]
     Indication: DEPRESSION
     Dosage: 90 MG, UNKNOWN
     Route: 048
     Dates: start: 20100201, end: 20100101
  2. METOPROLOL SUCCINATE [Concomitant]
     Dosage: UNK, UNKNOWN
     Route: 065
  3. RASILEZ [Concomitant]
     Indication: HYPERTENSION
     Dosage: 300 MG, UNKNOWN
     Route: 048
     Dates: start: 20090901
  4. ATACAND [Concomitant]
     Indication: HYPERTENSION
     Dosage: 32 MG, UNKNOWN
     Route: 048
     Dates: start: 20080101
  5. AMLODIPIN                          /00972401/ [Concomitant]
     Dosage: UNK, UNKNOWN
     Route: 065
  6. ASPIRIN [Concomitant]
     Dosage: UNK, UNKNOWN
     Route: 065
  7. METOPROLOL TARTRATE [Concomitant]
     Indication: HYPERTENSION
     Dosage: 95 MG, UNKNOWN
     Route: 048
     Dates: start: 20000101

REACTIONS (5)
  - DRUG INTERACTION [None]
  - HYPERTENSION [None]
  - HYPONATRAEMIA [None]
  - HYPOTENSION [None]
  - HYPOTONIA [None]
